FAERS Safety Report 5536550-4 (Version None)
Quarter: 2007Q4

REPORT INFORMATION
  Report Type: 
  Country: None (occurrence: None)
  Receive Date: 20071204
  Receipt Date: 20071121
  Transmission Date: 20080405
  Serious: Yes (Hospitalization)
  Sender: FDA-Public Use
  Company Number: 230696K07CAN

PATIENT
  Sex: Female

DRUGS (1)
  1. REBIF [Suspect]
     Indication: MULTIPLE SCLEROSIS
     Dosage: 50 %
     Dates: start: 20071027

REACTIONS (8)
  - FALL [None]
  - HYPERGLYCAEMIA [None]
  - INJECTION SITE ERYTHEMA [None]
  - INJECTION SITE REACTION [None]
  - INJECTION SITE WARMTH [None]
  - MULTIPLE SCLEROSIS RELAPSE [None]
  - OEDEMA PERIPHERAL [None]
  - URINARY INCONTINENCE [None]
